FAERS Safety Report 5134501-8 (Version None)
Quarter: 2006Q4

REPORT INFORMATION
  Report Type: 
  Country: None (occurrence: None)
  Receive Date: 20061023
  Receipt Date: 20061023
  Transmission Date: 20070319
  Serious: Yes (Hospitalization)
  Sender: FDA-Public Use
  Company Number: None

PATIENT
  Age: 57 Year
  Sex: Female
  Weight: 95 kg

DRUGS (3)
  1. ERBITUX [Suspect]
     Indication: PANCREATIC CARCINOMA
     Dosage: SEE IMAGE   WEEKLY
  2. GEMZAR [Suspect]
     Dosage: 50 MG/M2   2 X A WEEK
  3. RADIATION THERAPY [Concomitant]

REACTIONS (1)
  - STENT OCCLUSION [None]
